FAERS Safety Report 14022244 (Version 1)
Quarter: 2017Q3

REPORT INFORMATION
  Report Type: Spontaneous
  Country: US (occurrence: US)
  Receive Date: 20170928
  Receipt Date: 20170928
  Transmission Date: 20171128
  Serious: No
  Sender: FDA-Public Use
  Company Number: US-DRREDDYS-USA/USA/16/0082177

PATIENT
  Sex: Female
  Weight: 58.96 kg

DRUGS (2)
  1. AMOXICILLIN. [Suspect]
     Active Substance: AMOXICILLIN
     Route: 048
  2. AMOXICILLIN. [Suspect]
     Active Substance: AMOXICILLIN
     Indication: DENTAL OPERATION
     Route: 048
     Dates: start: 201505

REACTIONS (3)
  - Drug hypersensitivity [Unknown]
  - Incorrect dose administered [Unknown]
  - Pruritus generalised [Recovered/Resolved]
